FAERS Safety Report 23398425 (Version 1)
Quarter: 2024Q1

REPORT INFORMATION
  Report Type: Spontaneous
  Country: GB (occurrence: GB)
  Receive Date: 20240112
  Receipt Date: 20240112
  Transmission Date: 20240410
  Serious: Yes (Other)
  Sender: FDA-Public Use
  Company Number: GB-JNJFOC-20231174598

PATIENT
  Sex: Male

DRUGS (1)
  1. SUDAFED [Suspect]
     Active Substance: PSEUDOEPHEDRINE HYDROCHLORIDE
     Indication: Dyspnoea
     Dosage: USED IT FOR 12 MONTHS OR MORE
     Route: 065

REACTIONS (1)
  - Drug dependence [Not Recovered/Not Resolved]
